FAERS Safety Report 6713498-0 (Version None)
Quarter: 2010Q2

REPORT INFORMATION
  Report Type: 
  Country: None (occurrence: None)
  Receive Date: 20100506
  Receipt Date: 20100504
  Transmission Date: 20101027
  Serious: Yes (Congenital Anomaly)
  Sender: FDA-Public Use
  Company Number: TR-ROXANE LABORATORIES, INC.-2010-RO-00521RO

PATIENT
  Sex: Female
  Weight: 3 kg

DRUGS (3)
  1. LAMOTRIGINE [Suspect]
     Indication: DRUG EXPOSURE DURING PREGNANCY
     Route: 064
  2. TOPIRAMATE [Suspect]
     Indication: DRUG EXPOSURE DURING PREGNANCY
     Route: 064
  3. SODIUM VALPROATE [Suspect]
     Indication: DRUG EXPOSURE DURING PREGNANCY
     Route: 064

REACTIONS (5)
  - ATRIAL SEPTAL DEFECT [None]
  - CRANIOSYNOSTOSIS [None]
  - PATENT DUCTUS ARTERIOSUS [None]
  - RENAL HYPOPLASIA [None]
  - VENTRICULAR SEPTAL DEFECT [None]
